FAERS Safety Report 8079046-0 (Version None)
Quarter: 2012Q1

REPORT INFORMATION
  Report Type: 
  Country: None (occurrence: None)
  Receive Date: 20120128
  Receipt Date: 20110705
  Transmission Date: 20120608
  Serious: No
  Sender: FDA-Public Use
  Company Number: US-ABBOTT-11P-163-0836732-00

PATIENT
  Sex: Male
  Weight: 69.008 kg

DRUGS (3)
  1. HUMIRA [Suspect]
     Indication: PSORIASIS
     Dates: start: 20100701, end: 20110614
  2. PRILOSEC [Concomitant]
     Indication: GASTROOESOPHAGEAL REFLUX DISEASE
  3. ASPIRIN [Concomitant]
     Indication: PRODUCT USED FOR UNKNOWN INDICATION
     Dosage: LOW DOSE, ONCE DAILY

REACTIONS (4)
  - COUGH [None]
  - PHARYNGEAL DISORDER [None]
  - VISUAL IMPAIRMENT [None]
  - HAEMOGLOBIN DECREASED [None]
